FAERS Safety Report 4847461-1 (Version None)
Quarter: 2005Q4

REPORT INFORMATION
  Report Type: 
  Country: None (occurrence: None)
  Receive Date: 20051205
  Receipt Date: 20051130
  Transmission Date: 20060501
  Serious: Yes (Death)
  Sender: FDA-Public Use
  Company Number: 2005S1000863

PATIENT

DRUGS (1)
  1. INOMAX [Suspect]
     Indication: VASODILATION PROCEDURE
     Dosage: 80 PPM;INH_GAS;INH;CONT
     Route: 055
     Dates: start: 20041220, end: 20041220

REACTIONS (2)
  - CARDIAC ARREST [None]
  - POST PROCEDURAL COMPLICATION [None]
